FAERS Safety Report 6316348-X (Version None)
Quarter: 2009Q3

REPORT INFORMATION
  Report Type: 
  Country: None (occurrence: None)
  Receive Date: 20090820
  Receipt Date: 20090813
  Transmission Date: 20100115
  Serious: Yes (Disabling)
  Sender: FDA-Public Use
  Company Number: A0802864A

PATIENT
  Sex: Female
  Weight: 92 kg

DRUGS (4)
  1. PAZOPANIB [Suspect]
     Dosage: 800MG PER DAY
     Route: 048
     Dates: start: 20070724
  2. LAPATINIB [Suspect]
     Dosage: 1500MG PER DAY
     Route: 048
     Dates: start: 20070724
  3. DICLOFENAC [Concomitant]
     Dosage: 75MG TWICE PER DAY
     Route: 048
     Dates: start: 20090727
  4. OXYCONTIN [Concomitant]
     Dosage: 5MG TWICE PER DAY
     Route: 048
     Dates: start: 20090811

REACTIONS (1)
  - OSTEONECROSIS [None]
